FAERS Safety Report 19674881 (Version 1)
Quarter: 2021Q3

REPORT INFORMATION
  Report Type: Spontaneous
  Country: US (occurrence: US)
  Receive Date: 20210809
  Receipt Date: 20210809
  Transmission Date: 20211014
  Serious: Yes (Hospitalization)
  Sender: FDA-Public Use
  Company Number: None

PATIENT
  Age: 72 Year
  Sex: Male
  Weight: 61 kg

DRUGS (1)
  1. TECARTUS [Suspect]
     Active Substance: BREXUCABTAGENE AUTOLEUCEL
     Indication: MANTLE CELL LYMPHOMA
     Dates: start: 20210628

REACTIONS (7)
  - Gait inability [None]
  - Confusional state [None]
  - Computerised tomogram head abnormal [None]
  - Neoplasm malignant [None]
  - Vomiting [None]
  - Headache [None]
  - Body temperature increased [None]

NARRATIVE: CASE EVENT DATE: 20210706
